FAERS Safety Report 9293740 (Version 2)
Quarter: 2013Q2

REPORT INFORMATION
  Report Type: Spontaneous
  Country: US (occurrence: US)
  Receive Date: 20130516
  Receipt Date: 20130522
  Transmission Date: 20140414
  Serious: Yes (Hospitalization)
  Sender: FDA-Public Use
  Company Number: US-TEVA-405453USA

PATIENT
  Age: 59 Year
  Sex: Female

DRUGS (1)
  1. COPAXONE [Suspect]
     Indication: MULTIPLE SCLEROSIS
     Dates: start: 20120627

REACTIONS (4)
  - Angioplasty [Unknown]
  - Squamous cell carcinoma [Unknown]
  - Arterial occlusive disease [Not Recovered/Not Resolved]
  - Pain in extremity [Not Recovered/Not Resolved]
